FAERS Safety Report 20951552 (Version 2)
Quarter: 2022Q3

REPORT INFORMATION
  Report Type: Spontaneous
  Country: CL (occurrence: CL)
  Receive Date: 20220613
  Receipt Date: 20220816
  Transmission Date: 20221027
  Serious: No
  Sender: FDA-Public Use
  Company Number: CL-PFIZER INC-202200821438

PATIENT
  Age: 62 Year
  Sex: Female

DRUGS (1)
  1. IBRANCE [Suspect]
     Active Substance: PALBOCICLIB
     Indication: Breast cancer metastatic
     Dosage: UNK
     Dates: start: 20210328, end: 202205

REACTIONS (5)
  - Hot flush [Unknown]
  - Dry skin [Unknown]
  - Blister [Unknown]
  - Skin irritation [Unknown]
  - Pruritus [Unknown]
